FAERS Safety Report 7626031-6 (Version None)
Quarter: 2011Q3

REPORT INFORMATION
  Report Type: 
  Country: None (occurrence: None)
  Receive Date: 20110713
  Receipt Date: 20110630
  Transmission Date: 20111222
  Serious: Yes (Hospitalization)
  Sender: FDA-Public Use
  Company Number: JPI-P-015665

PATIENT
  Age: 53 Year
  Sex: Female

DRUGS (11)
  1. HYDROXYZINE HCL [Concomitant]
  2. ALBUTEROL SULFATE AUTOHALER [Concomitant]
  3. FLUTICASONE PROPIONATE [Concomitant]
  4. CITALOPRAM HYDROBROMIDE [Concomitant]
  5. CALCIUM CARBONATE [Concomitant]
  6. STOOL SOFTENER [Concomitant]
  7. FLUTICASONE AND SALMETEROL [Concomitant]
  8. XYREM [Suspect]
     Indication: CATAPLEXY
     Dosage: 6 GM (3 GM,2 IN 1 D),ORAL ; 9 GM (4.5 GM, 2 IN 1 D),ORAL
     Route: 048
     Dates: start: 20060306
  9. XYREM [Suspect]
     Indication: CATAPLEXY
     Dosage: 6 GM (3 GM,2 IN 1 D),ORAL ; 9 GM (4.5 GM, 2 IN 1 D),ORAL
     Route: 048
     Dates: start: 20050215
  10. TOLTERODINE TARTRATE [Concomitant]
  11. CALCIUM CITRATE WITH VITAMIN D [Concomitant]

REACTIONS (1)
  - INTESTINAL OBSTRUCTION [None]
